FAERS Safety Report 21884585 (Version 2)
Quarter: 2024Q2

REPORT INFORMATION
  Report Type: Report from Study
  Country: US (occurrence: US)
  Receive Date: 20230119
  Receipt Date: 20240402
  Transmission Date: 20240716
  Serious: Yes (Other)
  Sender: FDA-Public Use
  Company Number: US-ABBVIE-4275527

PATIENT
  Sex: Female

DRUGS (1)
  1. HUMIRA [Suspect]
     Active Substance: ADALIMUMAB
     Indication: Ankylosing spondylitis
     Dosage: CF; FORM STRENGTH: 40 MG
     Route: 058
     Dates: start: 2016

REACTIONS (4)
  - Limb operation [Recovered/Resolved]
  - Surgery [Unknown]
  - Fall [Unknown]
  - Spinal operation [Unknown]

NARRATIVE: CASE EVENT DATE: 20220101
